FAERS Safety Report 4313576-X (Version None)
Quarter: 2004Q1

REPORT INFORMATION
  Report Type: 
  Country: None (occurrence: None)
  Receive Date: 20040304
  Receipt Date: 20040218
  Transmission Date: 20041129
  Serious: Yes (Death)
  Sender: FDA-Public Use
  Company Number: USA021022950

PATIENT
  Age: 40 Year
  Sex: Female
  Weight: 64 kg

DRUGS (4)
  1. ZYPREXA [Suspect]
     Dosage: 225 MG/DAY
     Dates: start: 20021016, end: 20021016
  2. FLEXERIL [Concomitant]
  3. XANAX [Concomitant]
  4. EFFEXOR [Concomitant]

REACTIONS (2)
  - OVERDOSE [None]
  - PANCREATITIS [None]
